FAERS Safety Report 14113745 (Version 1)
Quarter: 2017Q4

REPORT INFORMATION
  Report Type: Report from Study
  Country: SE (occurrence: SE)
  Receive Date: 20171023
  Receipt Date: 20171023
  Transmission Date: 20180321
  Serious: Yes (Disabling, Other)
  Sender: FDA-Public Use
  Company Number: SE-VISTAPHARM, INC.-VER201710-000874

PATIENT
  Age: 61 Year
  Sex: Male

DRUGS (3)
  1. GENOTROPIN [Concomitant]
     Active Substance: SOMATROPIN
  2. METHADONE [Suspect]
     Active Substance: METHADONE HYDROCHLORIDE
     Indication: NEURALGIA
  3. GENOTROPIN [Concomitant]
     Active Substance: SOMATROPIN
     Indication: GROWTH HORMONE DEFICIENCY

REACTIONS (1)
  - Cognitive disorder [Recovering/Resolving]
